FAERS Safety Report 9815424 (Version 1)
Quarter: 2014Q1

REPORT INFORMATION
  Report Type: Spontaneous
  Country: US (occurrence: US)
  Receive Date: 20140114
  Receipt Date: 20140114
  Transmission Date: 20141002
  Serious: No
  Sender: FDA-Public Use
  Company Number: US-009507513-1401USA002489

PATIENT
  Age: 64 Year
  Sex: Male

DRUGS (13)
  1. JANUMET [Suspect]
     Dosage: UNK
     Route: 048
     Dates: start: 2010
  2. PRINIVIL [Suspect]
     Route: 048
  3. PAXIL [Concomitant]
  4. REQUIP [Concomitant]
  5. NORVASK [Concomitant]
  6. LANTUS [Concomitant]
  7. HUMALOG [Concomitant]
  8. VITAMIN D (UNSPECIFIED) [Concomitant]
  9. SOMATULINE [Concomitant]
  10. LYRICA [Concomitant]
  11. REMERON [Concomitant]
     Route: 048
  12. PROAIR (ALBUTEROL SULFATE) [Concomitant]
  13. ADVAIR [Concomitant]

REACTIONS (2)
  - Swollen tongue [Unknown]
  - Angioedema [Unknown]
